FAERS Safety Report 15003269 (Version 1)
Quarter: 2018Q2

REPORT INFORMATION
  Report Type: Spontaneous
  Country: US (occurrence: US)
  Receive Date: 20180613
  Receipt Date: 20180613
  Transmission Date: 20180711
  Serious: Yes (Other)
  Sender: FDA-Public Use
  Company Number: PHHY2018US019144

PATIENT
  Age: 59 Year
  Sex: Female

DRUGS (1)
  1. VANCOMYCIN [Suspect]
     Active Substance: VANCOMYCIN
     Indication: PRODUCT USED FOR UNKNOWN INDICATION
     Route: 065

REACTIONS (5)
  - Renal tubular necrosis [Unknown]
  - Metabolic acidosis [Unknown]
  - Delirium [Unknown]
  - Acute kidney injury [Unknown]
  - Clostridium difficile colitis [Unknown]
